FAERS Safety Report 11919777 (Version 1)
Quarter: 2016Q1

REPORT INFORMATION
  Report Type: Other
  Country: KR (occurrence: KR)
  Receive Date: 20160115
  Receipt Date: 20160115
  Transmission Date: 20160526
  Serious: Yes (Hospitalization)
  Sender: FDA-Public Use
  Company Number: KR-LUPIN PHARMACEUTICALS INC.-2016-00233

PATIENT
  Age: 84 Year
  Sex: Female

DRUGS (1)
  1. DONEPEZIL HYDROCHLORIDE 5 MG [Suspect]
     Active Substance: DONEPEZIL HYDROCHLORIDE
     Indication: ANTIDEPRESSANT THERAPY
     Dosage: 5 MG
     Route: 065

REACTIONS (1)
  - Cholestatic liver injury [Unknown]
